FAERS Safety Report 23300728 (Version 1)
Quarter: 2023Q4

REPORT INFORMATION
  Report Type: Spontaneous
  Country: US (occurrence: US)
  Receive Date: 20231215
  Receipt Date: 20231215
  Transmission Date: 20240109
  Serious: Yes (Other)
  Sender: FDA-Public Use
  Company Number: US-VIIV HEALTHCARE LIMITED-US2023171171

PATIENT

DRUGS (11)
  1. TRIUMEQ [Suspect]
     Active Substance: ABACAVIR SULFATE\DOLUTEGRAVIR SODIUM\LAMIVUDINE
     Indication: HIV infection
     Dosage: 1 DF, QD
     Route: 048
     Dates: start: 20220513, end: 20231107
  2. SEMAGLUTIDE [Concomitant]
     Active Substance: SEMAGLUTIDE
     Indication: Product used for unknown indication
     Dosage: 0.25 MG, WE, FOR 30 DAY
     Route: 058
     Dates: start: 20230706
  3. SEMAGLUTIDE [Concomitant]
     Active Substance: SEMAGLUTIDE
     Dosage: 0.5 MG, WE, FOR 30 DAY
     Route: 058
  4. SEMAGLUTIDE [Concomitant]
     Active Substance: SEMAGLUTIDE
     Dosage: 1 MG, WE, FOR 30 DAYS
     Route: 058
  5. SEMAGLUTIDE [Concomitant]
     Active Substance: SEMAGLUTIDE
     Dosage: 1.7 MG, WE, FOR 30 DAYS
     Route: 058
  6. SEMAGLUTIDE [Concomitant]
     Active Substance: SEMAGLUTIDE
     Dosage: 2.4 MG, WE, FOR 60 DAYS
     Route: 058
  7. PROVENTIL HFA [Concomitant]
     Active Substance: ALBUTEROL SULFATE
     Indication: Wheezing
     Dosage: 2 PUFF(S), EVERY 6 HOURS, AS NEEDED
     Route: 055
  8. BUPROPION HYDROCHLORIDE [Concomitant]
     Active Substance: BUPROPION HYDROCHLORIDE
     Indication: Smoking cessation therapy
     Dosage: 1 DF, BID
     Route: 048
     Dates: start: 20230104
  9. TRELEGY ELLIPTA [Concomitant]
     Active Substance: FLUTICASONE FUROATE\UMECLIDINIUM BROMIDE\VILANTEROL TRIFENATATE
     Indication: Product used for unknown indication
     Dosage: 1 PUFF(S), QD
     Dates: start: 20230109
  10. INFLUENZA VIRUS VACCINE [Concomitant]
     Active Substance: INFLUENZA VIRUS VACCINE
     Indication: Prophylaxis
     Dosage: UNK, 6 MONTHS, OLDER
     Dates: start: 20230126
  11. PNEUMOCOCCAL VACCINE POLYVALENT [Concomitant]
     Active Substance: PNEUMOCOCCAL VACCINE POLYVALENT
     Indication: Prophylaxis
     Dosage: UNK, 13 VALENT
     Dates: start: 20230126

REACTIONS (29)
  - Vaginal cancer recurrent [Unknown]
  - Uterine cancer [Unknown]
  - Skin cancer [Unknown]
  - Vaginal cancer stage 0 [Unknown]
  - Cervix carcinoma [Unknown]
  - Breast abscess [Unknown]
  - Mean cell haemoglobin increased [Unknown]
  - High density lipoprotein decreased [Unknown]
  - CD8 lymphocytes increased [Unknown]
  - CD4/CD8 ratio decreased [Unknown]
  - CD4 lymphocytes decreased [Unknown]
  - Lymphocyte count increased [Unknown]
  - Blood glucose increased [Unknown]
  - Albumin globulin ratio increased [Unknown]
  - Breast cyst [Unknown]
  - Chronic obstructive pulmonary disease [Unknown]
  - Haematuria [Unknown]
  - Muscle spasms [Unknown]
  - Fatigue [Unknown]
  - Bronchitis bacterial [Unknown]
  - Thyroid mass [Unknown]
  - Cellulitis [Unknown]
  - Mastitis [Unknown]
  - Mammary fistula [Unknown]
  - Nipple disorder [Unknown]
  - Insomnia [Unknown]
  - Obesity [Unknown]
  - Sleep apnoea syndrome [Unknown]
  - Disease recurrence [Unknown]

NARRATIVE: CASE EVENT DATE: 20220726
